FAERS Safety Report 7565670-8 (Version None)
Quarter: 2011Q2

REPORT INFORMATION
  Report Type: 
  Country: None (occurrence: None)
  Receive Date: 20110616
  Receipt Date: 20110531
  Transmission Date: 20111010
  Serious: Yes (Death)
  Sender: FDA-Public Use
  Company Number: FK201101132

PATIENT
  Age: 47 Year
  Sex: Female

DRUGS (1)
  1. PROPOFOL [Suspect]
     Indication: SEDATIVE THERAPY
     Dosage: 10.5MG/KG/H

REACTIONS (10)
  - BRADYCARDIA [None]
  - CARDIAC ARREST [None]
  - HYPOTENSION [None]
  - VENTRICULAR HYPOKINESIA [None]
  - ACID-BASE BALANCE DISORDER MIXED [None]
  - DEVICE CAPTURING ISSUE [None]
  - PULSELESS ELECTRICAL ACTIVITY [None]
  - BUNDLE BRANCH BLOCK RIGHT [None]
  - LEFT VENTRICULAR DYSFUNCTION [None]
  - HAEMODYNAMIC INSTABILITY [None]
